FAERS Safety Report 13174927 (Version 1)
Quarter: 2017Q1

REPORT INFORMATION
  Report Type: Spontaneous
  Country: US (occurrence: US)
  Receive Date: 20170131
  Receipt Date: 20170131
  Transmission Date: 20170428
  Serious: Yes (Hospitalization)
  Sender: FDA-Public Use
  Company Number: None

PATIENT
  Age: 69 Year
  Sex: Female

DRUGS (18)
  1. BOTOX [Suspect]
     Active Substance: ONABOTULINUMTOXINA
     Indication: HYPERTONIC BLADDER
     Dosage: 200UI Q 90 D SC
     Route: 058
     Dates: start: 20160728
  2. BOTOX [Suspect]
     Active Substance: ONABOTULINUMTOXINA
     Indication: RHEUMATOID ARTHRITIS
     Dosage: 200UI Q 90 D SC
     Route: 058
     Dates: start: 20160728
  3. CALCIUM [Concomitant]
     Active Substance: CALCIUM
  4. FOLIC ACID. [Concomitant]
     Active Substance: FOLIC ACID
  5. VITAMIN D [Concomitant]
     Active Substance: CHOLECALCIFEROL
  6. PREDNISONE. [Concomitant]
     Active Substance: PREDNISONE
  7. METHOTREXARE [Concomitant]
  8. VITAMIN D3 [Concomitant]
     Active Substance: CHOLECALCIFEROL
  9. ZOLOFT [Concomitant]
     Active Substance: SERTRALINE HYDROCHLORIDE
  10. ORENCIA [Concomitant]
     Active Substance: ABATACEPT
  11. FLUOXETINE [Concomitant]
     Active Substance: FLUOXETINE HYDROCHLORIDE
  12. ZYMAXID [Concomitant]
     Active Substance: GATIFLOXACIN
  13. HYDROCONE [Concomitant]
  14. LASIX [Concomitant]
     Active Substance: FUROSEMIDE
  15. IRON [Concomitant]
     Active Substance: IRON
  16. PRAMPEXOLE [Concomitant]
  17. ORENCIA [Suspect]
     Active Substance: ABATACEPT
     Indication: RHEUMATOID ARTHRITIS
     Route: 058
     Dates: start: 20160809
  18. ALPRAZOLAM. [Concomitant]
     Active Substance: ALPRAZOLAM

REACTIONS (2)
  - Blood sodium decreased [None]
  - Urinary tract infection [None]

NARRATIVE: CASE EVENT DATE: 201601
